FAERS Safety Report 8206392-X (Version None)
Quarter: 2012Q1

REPORT INFORMATION
  Report Type: 
  Country: None (occurrence: None)
  Receive Date: 20120313
  Receipt Date: 20120307
  Transmission Date: 20120608
  Serious: Yes (Hospitalization)
  Sender: FDA-Public Use
  Company Number: PHEH2012US005320

PATIENT
  Sex: Male

DRUGS (1)
  1. NEORAL [Suspect]
     Indication: COMPLICATIONS OF TRANSPLANTED KIDNEY
     Dosage: 75 MG, DAILY
     Route: 048

REACTIONS (1)
  - FLUID RETENTION [None]
